FAERS Safety Report 17994027 (Version 1)
Quarter: 2020Q3

REPORT INFORMATION
  Report Type: Spontaneous
  Country: FR (occurrence: FR)
  Receive Date: 20200708
  Receipt Date: 20200708
  Transmission Date: 20201103
  Serious: Yes (Other)
  Sender: FDA-Public Use
  Company Number: FR-ROCHE-2636923

PATIENT
  Age: 78 Year
  Sex: Male
  Weight: 82 kg

DRUGS (6)
  1. REVLIMID [Concomitant]
     Active Substance: LENALIDOMIDE
  2. IBRUTINIB [Concomitant]
     Active Substance: IBRUTINIB
  3. RITUXIMAB. [Suspect]
     Active Substance: RITUXIMAB
     Indication: DIFFUSE LARGE B-CELL LYMPHOMA
     Route: 065
  4. BENDAMUSTINE [Concomitant]
     Active Substance: BENDAMUSTINE
  5. METHOTREXATE. [Concomitant]
     Active Substance: METHOTREXATE
  6. VENETOCLAX. [Concomitant]
     Active Substance: VENETOCLAX

REACTIONS (3)
  - Intentional product use issue [Unknown]
  - Off label use [Unknown]
  - Colitis [Unknown]
